FAERS Safety Report 6683620-3 (Version None)
Quarter: 2010Q2

REPORT INFORMATION
  Report Type: 
  Country: None (occurrence: None)
  Receive Date: 20100412
  Receipt Date: 20090724
  Transmission Date: 20101027
  Serious: No
  Sender: FDA-Public Use
  Company Number: 2009-00434

PATIENT
  Age: 87 Year
  Sex: Female
  Weight: 51.7101 kg

DRUGS (1)
  1. ZICAM COLD REMEDY NASAL GEL [Suspect]
     Dosage: SPORADIC - COUPLE YEARS : COUPLE YRS AGO - RECENT

REACTIONS (2)
  - AGEUSIA [None]
  - ANOSMIA [None]
